FAERS Safety Report 19801197 (Version 1)
Quarter: 2021Q3

REPORT INFORMATION
  Report Type: Spontaneous
  Country: GB (occurrence: GB)
  Receive Date: 20210908
  Receipt Date: 20210908
  Transmission Date: 20211014
  Serious: Yes (Other)
  Sender: FDA-Public Use
  Company Number: GB-SA-2021SA232457

PATIENT
  Age: 55 Year
  Sex: Female

DRUGS (36)
  1. PACLITAXEL. [Suspect]
     Active Substance: PACLITAXEL
     Dosage: 375 MG, CYCLIC (EVERY 3 WEEKS)
     Route: 042
     Dates: start: 20170705, end: 20170726
  2. TRASTUZUMAB. [Suspect]
     Active Substance: TRASTUZUMAB
     Indication: BREAST CANCER
     Dosage: 400 MG, CYCLIC (EVERY 3 WEEKS)
     Route: 042
     Dates: start: 20170614, end: 20180425
  3. CETIRIZINE [Concomitant]
     Active Substance: CETIRIZINE HYDROCHLORIDE
     Indication: PRODUCT USED FOR UNKNOWN INDICATION
     Dosage: 10 MG, 1X/DAY
     Route: 048
     Dates: start: 20190313
  4. PERTUZUMAB. [Suspect]
     Active Substance: PERTUZUMAB
     Dosage: 420 MG, CYCLIC (EVERY 3 WEEKS)
     Route: 042
     Dates: start: 20170614, end: 20190327
  5. CHLORHEXIDINE GLUCONATE. [Concomitant]
     Active Substance: CHLORHEXIDINE GLUCONATE
     Indication: PRODUCT USED FOR UNKNOWN INDICATION
     Dosage: 10 ML, 4X/DAY
     Route: 061
     Dates: start: 20170525
  6. CHLORPHENAMINE [Concomitant]
     Active Substance: CHLORPHENIRAMINE MALEATE
     Indication: PRODUCT USED FOR UNKNOWN INDICATION
     Dosage: 4 MG, 4X/DAY
     Route: 048
     Dates: start: 20170526
  7. FUSIDIC ACID [Concomitant]
     Active Substance: FUSIDIC ACID
     Indication: PRODUCT USED FOR UNKNOWN INDICATION
     Dosage: UNK
     Route: 065
     Dates: start: 201905
  8. SANDO K [POTASSIUM BICARBONATE;POTASSIUM CHLORIDE] [Concomitant]
     Active Substance: POTASSIUM BICARBONATE\POTASSIUM CHLORIDE
     Indication: PRODUCT USED FOR UNKNOWN INDICATION
     Dosage: 1 DF, 2X/DAY
     Route: 048
     Dates: start: 20170525
  9. TRASTUZUMAB. [Suspect]
     Active Substance: TRASTUZUMAB
     Dosage: 400 MG, TIW
     Route: 042
     Dates: start: 20170614, end: 20180425
  10. TRASTUZUMAB EMTANSINE [Suspect]
     Active Substance: ADO-TRASTUZUMAB EMTANSINE
     Dosage: 240 MG, CYCLIC (EVERY 3 WEEKS)
     Route: 042
     Dates: start: 20190427, end: 20190606
  11. TRASTUZUMAB EMTANSINE [Suspect]
     Active Substance: ADO-TRASTUZUMAB EMTANSINE
     Dosage: 200 MG, CYCLIC (EVERY 3 WEEKS)
     Route: 042
     Dates: start: 20190627, end: 20190718
  12. CALCICHEW D3 FORTE [Concomitant]
     Active Substance: CALCIUM\CHOLECALCIFEROL
     Indication: PRODUCT USED FOR UNKNOWN INDICATION
     Dosage: UNK, 3X/DAY
     Route: 048
     Dates: start: 20170525
  13. LOPERAMIDE [Concomitant]
     Active Substance: LOPERAMIDE
     Indication: PRODUCT USED FOR UNKNOWN INDICATION
     Dosage: 2 MG
     Route: 048
     Dates: start: 20170613
  14. SORBINICATE [Concomitant]
     Active Substance: SORBINICATE
     Indication: PRODUCT USED FOR UNKNOWN INDICATION
     Dosage: 1 DF, 4X/DAY
     Route: 060
     Dates: start: 20170526
  15. APIXABAN [Concomitant]
     Active Substance: APIXABAN
     Indication: DEPRESSED MOOD
     Dosage: 2.5 MG, 2X/DAY
     Route: 048
     Dates: start: 20190819, end: 20190917
  16. IKERVIS [Concomitant]
     Active Substance: CYCLOSPORINE
     Indication: PRODUCT USED FOR UNKNOWN INDICATION
     Dosage: UNK
     Route: 047
     Dates: start: 201708
  17. DOCETAXEL. [Suspect]
     Active Substance: DOCETAXEL
     Indication: BREAST CANCER
     Dosage: 130 MG, CYCLIC (EVERY 3 WEEKS)
     Route: 042
     Dates: start: 20170525, end: 20170525
  18. PACLITAXEL. [Suspect]
     Active Substance: PACLITAXEL
     Indication: BREAST CANCER
     Dosage: 450 MG, CYCLIC (EVERY 3 WEEKS)
     Route: 042
     Dates: start: 20170614, end: 20170614
  19. PACLITAXEL. [Suspect]
     Active Substance: PACLITAXEL
     Dosage: 450 MG, CYCLIC (EVERY 3 WEEKS)
     Route: 042
     Dates: start: 20170816, end: 20170906
  20. TRASTUZUMAB. [Suspect]
     Active Substance: TRASTUZUMAB
     Dosage: 525MG CYCLIC (EVERY 3 WEEKS) LOADING DOSE
     Route: 042
     Dates: start: 20170524, end: 20170524
  21. PERTUZUMAB. [Suspect]
     Active Substance: PERTUZUMAB
     Indication: BREAST CANCER
     Dosage: 840 MG, CYCLIC (EVERY 3 WEEKS (LOADING DOSE))
     Route: 042
     Dates: start: 20170524, end: 20170524
  22. TRASTUZUMAB EMTANSINE [Suspect]
     Active Substance: ADO-TRASTUZUMAB EMTANSINE
     Dosage: 160 MG, CYCLIC (EVERY 3 WEEKS)
     Route: 042
     Dates: start: 20190829
  23. DOMPERIDONE [Concomitant]
     Active Substance: DOMPERIDONE
     Indication: PRODUCT USED FOR UNKNOWN INDICATION
     Dosage: 10 MG, CYCLIC
     Route: 048
     Dates: start: 20170523
  24. RANITIDINE. [Concomitant]
     Active Substance: RANITIDINE
     Indication: PRODUCT USED FOR UNKNOWN INDICATION
     Dosage: 150 MG, 2X/DAY
     Route: 048
     Dates: start: 20170525
  25. TRASTUZUMAB. [Suspect]
     Active Substance: TRASTUZUMAB
     Dosage: 378 MG, CYCLIC (EVERY 3 WEEKS)
     Route: 042
     Dates: start: 20180516, end: 20190327
  26. TRASTUZUMAB EMTANSINE [Suspect]
     Active Substance: ADO-TRASTUZUMAB EMTANSINE
     Indication: BREAST CANCER
     Dosage: UNK
     Route: 065
  27. AMITRIPTYLINE HYDROCHLORIDE. [Concomitant]
     Active Substance: AMITRIPTYLINE HYDROCHLORIDE
     Indication: DEPRESSED MOOD
     Dosage: 5 MG, 1X/DAY
     Route: 048
     Dates: start: 20190827
  28. CARMELLOSE SODIUM [Concomitant]
     Active Substance: CARBOXYMETHYLCELLULOSE SODIUM
     Indication: PRODUCT USED FOR UNKNOWN INDICATION
     Dosage: 1 DF, 4X/DAY
     Route: 060
     Dates: start: 20170526
  29. CLOBETASOL PROPIONATE. [Concomitant]
     Active Substance: CLOBETASOL PROPIONATE
     Indication: PRODUCT USED FOR UNKNOWN INDICATION
     Dosage: 0.05 %, CYCLIC
     Route: 061
     Dates: start: 20170210
  30. ERYTHROMYCIN. [Concomitant]
     Active Substance: ERYTHROMYCIN
     Indication: PRODUCT USED FOR UNKNOWN INDICATION
     Dosage: UNK MG
     Route: 048
     Dates: start: 20190123, end: 20190202
  31. PARACETAMOL [Concomitant]
     Active Substance: ACETAMINOPHEN
     Indication: PRODUCT USED FOR UNKNOWN INDICATION
     Dosage: UNK
     Route: 048
     Dates: start: 20170525
  32. TINZAPARIN [Concomitant]
     Active Substance: TINZAPARIN
     Dosage: UNK
     Route: 058
     Dates: start: 20190916
  33. TRANEXAMIC ACID. [Concomitant]
     Active Substance: TRANEXAMIC ACID
     Indication: PRODUCT USED FOR UNKNOWN INDICATION
     Dosage: UNK
     Route: 065
     Dates: start: 20190722
  34. FLUCLOXACILLIN [Concomitant]
     Active Substance: FLUCLOXACILLIN
     Indication: PRODUCT USED FOR UNKNOWN INDICATION
     Dosage: UNK
     Route: 048
     Dates: start: 20190122
  35. TINZAPARIN [Concomitant]
     Active Substance: TINZAPARIN
     Indication: PRODUCT USED FOR UNKNOWN INDICATION
     Dosage: UNK UNK, QD
     Route: 058
     Dates: start: 20170713, end: 20190723
  36. ZOLEDRONIC ACID [Concomitant]
     Active Substance: ZOLEDRONIC ACID
     Indication: PRODUCT USED FOR UNKNOWN INDICATION
     Dosage: 4 MG
     Route: 042
     Dates: start: 20170525

REACTIONS (2)
  - Gastritis [Not Recovered/Not Resolved]
  - Off label use [Not Recovered/Not Resolved]

NARRATIVE: CASE EVENT DATE: 20190727
